FAERS Safety Report 12874162 (Version 1)
Quarter: 2016Q4

REPORT INFORMATION
  Report Type: Spontaneous
  Country: US (occurrence: US)
  Receive Date: 20161021
  Receipt Date: 20161021
  Transmission Date: 20170207
  Serious: Yes (Hospitalization)
  Sender: FDA-Public Use
  Company Number: US-009507513-1610USA005016

PATIENT
  Age: 40 Year
  Sex: Female

DRUGS (5)
  1. INVANZ [Suspect]
     Active Substance: ERTAPENEM SODIUM
     Indication: ESCHERICHIA URINARY TRACT INFECTION
     Dosage: 1 G, ONCE
     Route: 042
     Dates: start: 20161004
  2. DOXYCYCLINE. [Suspect]
     Active Substance: DOXYCYCLINE
     Indication: ESCHERICHIA URINARY TRACT INFECTION
     Dosage: 100 MG, TWICE A DAY
     Route: 048
     Dates: start: 20161004
  3. MERREM [Suspect]
     Active Substance: MEROPENEM
     Indication: ESCHERICHIA URINARY TRACT INFECTION
     Dosage: 500 MG, EVERY 8 HOURS
     Route: 042
     Dates: start: 20161004
  4. CIPROFLOXACIN. [Concomitant]
     Active Substance: CIPROFLOXACIN
     Dosage: 250 MG, BID
     Dates: start: 20160914, end: 20160917
  5. CIPROFLOXACIN. [Concomitant]
     Active Substance: CIPROFLOXACIN
     Indication: ESCHERICHIA URINARY TRACT INFECTION
     Dosage: 250 MG, BID
     Dates: start: 20160930, end: 20161002

REACTIONS (2)
  - Pollakiuria [Unknown]
  - Dysuria [Unknown]

NARRATIVE: CASE EVENT DATE: 201610
